FAERS Safety Report 12197178 (Version 1)
Quarter: 2016Q1

REPORT INFORMATION
  Report Type: Spontaneous
  Country: US (occurrence: US)
  Receive Date: 20160321
  Receipt Date: 20160321
  Transmission Date: 20160526
  Serious: No
  Sender: FDA-Public Use
  Company Number: US-SHIRE-US201603128

PATIENT
  Age: 25 Year
  Sex: Male

DRUGS (3)
  1. NATPARA MIXING DEVICE [Suspect]
     Active Substance: DEVICE
     Indication: BLOOD CALCIUM DECREASED
     Dosage: 50 ?G, 1X/DAY:QD
     Route: 058
     Dates: start: 20151106
  2. NATPARA (PARATHYROID HORMONE) [Suspect]
     Active Substance: PARATHYROID HORMONE
     Indication: BLOOD CALCIUM DECREASED
     Dosage: 50 ?G, 1X/DAY:QD
     Route: 058
     Dates: start: 20151106
  3. NATPARA (PARATHYROID HORMONE) [Suspect]
     Active Substance: PARATHYROID HORMONE
     Indication: BLOOD CALCIUM DECREASED
     Dosage: 50 ?G, 1X/DAY:QD
     Route: 058
     Dates: start: 20151106

REACTIONS (4)
  - Device malfunction [Not Recovered/Not Resolved]
  - Product packaging issue [Not Recovered/Not Resolved]
  - Drug dose omission [Recovered/Resolved]
  - Device leakage [Not Recovered/Not Resolved]

NARRATIVE: CASE EVENT DATE: 20160312
